FAERS Safety Report 9383812 (Version 1)
Quarter: 2013Q3

REPORT INFORMATION
  Report Type: Spontaneous
  Country: FR (occurrence: FR)
  Receive Date: 20130704
  Receipt Date: 20130704
  Transmission Date: 20140515
  Serious: Yes (Hospitalization, Other)
  Sender: FDA-Public Use
  Company Number: FR-ASTRAZENECA-2013SE48918

PATIENT
  Sex: Female

DRUGS (2)
  1. TENORMINE [Suspect]
     Indication: HYPERTENSION
     Route: 048
  2. TENORMINE [Suspect]
     Indication: HYPERTENSION
     Route: 048

REACTIONS (5)
  - Hypoglycaemia [Recovered/Resolved]
  - Withdrawal hypertension [Unknown]
  - Epistaxis [Unknown]
  - Asthma [Recovered/Resolved]
  - Intentional drug misuse [Unknown]
